FAERS Safety Report 5446257-X (Version None)
Quarter: 2007Q3

REPORT INFORMATION
  Report Type: 
  Country: None (occurrence: None)
  Receive Date: 20070731
  Receipt Date: 20060811
  Transmission Date: 20080115
  Serious: Yes (Other)
  Sender: FDA-Public Use
  Company Number: US-2006-003508

PATIENT
  Age: 43 Year
  Sex: Male
  Weight: 86.2 kg

DRUGS (3)
  1. MAGNEVIST [Suspect]
     Indication: NUCLEAR MAGNETIC RESONANCE IMAGING
     Dosage: 10 ML, 1 DOSE, INTRAVENOUS; 20 ML, 1 DOSE, INTRAVENOUS
     Route: 042
     Dates: start: 20060203, end: 20060203
  2. MAGNEVIST [Suspect]
     Indication: NUCLEAR MAGNETIC RESONANCE IMAGING
     Dosage: 10 ML, 1 DOSE, INTRAVENOUS; 20 ML, 1 DOSE, INTRAVENOUS
     Route: 042
     Dates: start: 20060203, end: 20060203
  3. MAGNEVIST [Suspect]

REACTIONS (3)
  - CONVULSION [None]
  - RETCHING [None]
  - VOMITING [None]
